FAERS Safety Report 10210814 (Version 1)
Quarter: 2014Q2

REPORT INFORMATION
  Report Type: Spontaneous
  Country: US (occurrence: US)
  Receive Date: 20140602
  Receipt Date: 20140602
  Transmission Date: 20141212
  Serious: No
  Sender: FDA-Public Use
  Company Number: US-GILEAD-2014-0103546

PATIENT
  Age: 62 Year
  Sex: Female
  Weight: 74.83 kg

DRUGS (3)
  1. SOVALDI [Suspect]
     Indication: HEPATITIS C
     Dosage: 400 MG, QD
     Route: 048
     Dates: start: 20140222
  2. SIMEPREVIR [Suspect]
     Indication: HEPATITIS C
     Dosage: 150 MG, UNK
     Route: 048
     Dates: start: 20140222
  3. LEXAPRO [Concomitant]
     Indication: DEPRESSION
     Dosage: 10 MG, QD
     Route: 048
     Dates: start: 2011

REACTIONS (5)
  - Pain [Unknown]
  - Neuropathy peripheral [Recovered/Resolved]
  - Toothache [Unknown]
  - Dental pulp disorder [Unknown]
  - Off label use [Not Recovered/Not Resolved]
